FAERS Safety Report 21536545 (Version 1)
Quarter: 2022Q4

REPORT INFORMATION
  Report Type: Spontaneous
  Country: US (occurrence: None)
  Receive Date: 20221031
  Receipt Date: 20221031
  Transmission Date: 20230113
  Serious: Yes (Other)
  Sender: FDA-Public Use
  Company Number: None

PATIENT
  Sex: Female

DRUGS (2)
  1. LISINOPRIL [Suspect]
     Active Substance: LISINOPRIL
  2. METOPROLOL [Suspect]
     Active Substance: METOPROLOL

REACTIONS (4)
  - Hyperkalaemia [None]
  - Blood urea increased [None]
  - Blood creatinine increased [None]
  - Hypertransaminasaemia [None]

NARRATIVE: CASE EVENT DATE: 20220214
